FAERS Safety Report 7103275-3 (Version None)
Quarter: 2010Q4

REPORT INFORMATION
  Report Type: 
  Country: None (occurrence: None)
  Receive Date: 20101115
  Receipt Date: 20101013
  Transmission Date: 20110411
  Serious: No
  Sender: FDA-Public Use
  Company Number: US-JNJFOC-20100905846

PATIENT
  Sex: Female
  Weight: 108.86 kg

DRUGS (2)
  1. INVEGA [Suspect]
     Indication: SCHIZOAFFECTIVE DISORDER
     Route: 048
  2. LAMICTAL [Concomitant]
     Indication: DEPRESSION
     Route: 048

REACTIONS (2)
  - TEMPERATURE INTOLERANCE [None]
  - THERAPEUTIC RESPONSE UNEXPECTED [None]
